FAERS Safety Report 4289801-0 (Version None)
Quarter: 2004Q1

REPORT INFORMATION
  Report Type: 
  Country: None (occurrence: None)
  Receive Date: 20040210
  Receipt Date: 20040128
  Transmission Date: 20041129
  Serious: Yes (Death)
  Sender: FDA-Public Use
  Company Number: HT-GLAXOSMITHKLINE-B0321874A

PATIENT
  Age: 4 Year
  Sex: Female

DRUGS (2)
  1. ALBENDAZOLE [Suspect]
     Route: 065
     Dates: start: 20030101
  2. DIETHYLCARBAMAZINE [Suspect]
     Route: 065
     Dates: start: 20030101

REACTIONS (1)
  - ASPIRATION [None]
